FAERS Safety Report 17083291 (Version 1)
Quarter: 2019Q4

REPORT INFORMATION
  Report Type: Spontaneous
  Country: US (occurrence: US)
  Receive Date: 20191127
  Receipt Date: 20191127
  Transmission Date: 20200122
  Serious: No
  Sender: FDA-Public Use
  Company Number: US-SA-2019SA326588

PATIENT
  Age: 77 Year
  Sex: Female

DRUGS (1)
  1. ENOXAPARIN SODIUM - WINTHROP [Suspect]
     Active Substance: ENOXAPARIN SODIUM
     Dosage: 120 MG, BID
     Route: 065

REACTIONS (2)
  - Spinal pain [Not Recovered/Not Resolved]
  - Injection site bruising [Not Recovered/Not Resolved]
